FAERS Safety Report 5227331-X (Version None)
Quarter: 2007Q1

REPORT INFORMATION
  Report Type: 
  Country: None (occurrence: None)
  Receive Date: 20070202
  Receipt Date: 20070129
  Transmission Date: 20070707
  Serious: Yes (Hospitalization)
  Sender: FDA-Public Use
  Company Number: US-MERCK-0701USA04766

PATIENT
  Age: 82 Year
  Sex: Female

DRUGS (6)
  1. ZOCOR [Suspect]
     Route: 048
  2. PREVACID [Suspect]
     Route: 065
  3. DILANTIN [Concomitant]
     Indication: CONVULSION
     Route: 065
  4. DIGOXIN [Concomitant]
     Route: 065
  5. MOXIFLOXACIN HYDROCHLORIDE [Concomitant]
     Route: 065
  6. COUMADIN [Concomitant]
     Route: 065

REACTIONS (1)
  - COLITIS COLLAGENOUS [None]
